FAERS Safety Report 15053414 (Version 2)
Quarter: 2018Q3

REPORT INFORMATION
  Report Type: Report from Study
  Country: GB (occurrence: GB)
  Receive Date: 20180622
  Receipt Date: 20180709
  Transmission Date: 20181010
  Serious: Yes (Hospitalization)
  Sender: FDA-Public Use
  Company Number: GB-CLOVIS ONCOLOGY-CLO-2018-000621

PATIENT

DRUGS (7)
  1. RUCAPARIB [Suspect]
     Active Substance: RUCAPARIB
     Indication: OVARIAN CANCER
     Dosage: 400 MG, BID
     Route: 048
     Dates: start: 20180301, end: 20180525
  2. DOMPERIDONE [Concomitant]
     Active Substance: DOMPERIDONE
     Dosage: 20 UNK, UNK
     Route: 048
     Dates: start: 20180304
  3. RUCAPARIB [Suspect]
     Active Substance: RUCAPARIB
     Dosage: 500 UNK, UNK
     Route: 048
     Dates: start: 20180615
  4. DOMPERIDONE [Concomitant]
     Active Substance: DOMPERIDONE
     Indication: NAUSEA
     Dosage: 80 MG, UNK
     Route: 048
     Dates: start: 20180301, end: 20180526
  5. FLUCONAZOLE. [Concomitant]
     Active Substance: FLUCONAZOLE
     Indication: BURNING SENSATION
     Dosage: 50 MG, UNK
     Route: 048
     Dates: start: 20180520, end: 20180524
  6. NITROFURANTOIN. [Concomitant]
     Active Substance: NITROFURANTOIN
     Indication: BURNING SENSATION
     Dosage: 200 MG, UNK
     Route: 048
     Dates: start: 20180522, end: 20180525
  7. ATEZOLIZUMAB. [Suspect]
     Active Substance: ATEZOLIZUMAB
     Indication: OVARIAN CANCER
     Dosage: 1200 MG, Q21D
     Route: 042
     Dates: start: 20180419, end: 20180531

REACTIONS (1)
  - Neutropenic sepsis [Recovered/Resolved]

NARRATIVE: CASE EVENT DATE: 20180525
